FAERS Safety Report 8962682 (Version 1)
Quarter: 2012Q4

REPORT INFORMATION
  Report Type: 
  Country: IT (occurrence: IT)
  Receive Date: 20121214
  Receipt Date: 20121214
  Transmission Date: 20130627
  Serious: Yes (Other)
  Sender: FDA-Public Use
  Company Number: IT-EISAI INC-E3810-06121-SPO-IT

PATIENT
  Age: 82 Year
  Sex: Female

DRUGS (1)
  1. PARIET (RABEPRAZOLE) [Suspect]
     Indication: GERD
     Route: 048
     Dates: start: 20000101, end: 20111231

REACTIONS (1)
  - Gastric polyps [Not Recovered/Not Resolved]
